FAERS Safety Report 22042384 (Version 2)
Quarter: 2023Q1

REPORT INFORMATION
  Report Type: Report from Study
  Country: US (occurrence: US)
  Receive Date: 20230228
  Receipt Date: 20230303
  Transmission Date: 20230417
  Serious: Yes (Hospitalization, Other)
  Sender: FDA-Public Use
  Company Number: US-ABBVIE-4319910

PATIENT
  Age: 33 Year
  Sex: Female

DRUGS (1)
  1. SKYRIZI [Suspect]
     Active Substance: RISANKIZUMAB-RZAA
     Indication: Crohn^s disease
     Dosage: DISCONTINUED IN 2023
     Route: 042
     Dates: start: 20230111

REACTIONS (2)
  - Abscess [Recovering/Resolving]
  - Colectomy [Recovering/Resolving]

NARRATIVE: CASE EVENT DATE: 20230120
